FAERS Safety Report 4382777-7 (Version None)
Quarter: 2004Q2

REPORT INFORMATION
  Report Type: 
  Country: None (occurrence: None)
  Receive Date: 20040617
  Receipt Date: 20040601
  Transmission Date: 20050107
  Serious: Yes (Hospitalization)
  Sender: FDA-Public Use
  Company Number: 701596

PATIENT
  Age: 33 Year
  Sex: Female

DRUGS (6)
  1. AMEVIVE [Suspect]
     Indication: PSORIASIS
     Dosage: 15 MG QW IM
     Route: 030
     Dates: start: 20030101, end: 20030101
  2. AMEVIVE [Suspect]
     Indication: PSORIASIS
     Dosage: 15 MG QW IM
     Route: 030
     Dates: start: 20030101, end: 20040130
  3. ZANTAC [Concomitant]
  4. ZOLOFT [Concomitant]
  5. ORTHO-NOVUM [Concomitant]
  6. ADVIL [Concomitant]

REACTIONS (4)
  - COAGULOPATHY [None]
  - HEPATIC FAILURE [None]
  - INTERNATIONAL NORMALISED RATIO DECREASED [None]
  - PROTHROMBIN TIME PROLONGED [None]
